FAERS Safety Report 5338018-7 (Version None)
Quarter: 2007Q2

REPORT INFORMATION
  Report Type: 
  Country: None (occurrence: None)
  Receive Date: 20070530
  Receipt Date: 20070518
  Transmission Date: 20071010
  Serious: Yes (Hospitalization, Other)
  Sender: FDA-Public Use
  Company Number: PHEH2007US04840

PATIENT
  Age: 41 Year
  Sex: Female

DRUGS (9)
  1. ZELNORM [Suspect]
     Indication: IMPAIRED GASTRIC EMPTYING
     Dosage: 6 MG, BID
     Route: 048
     Dates: end: 20070430
  2. ZELNORM [Suspect]
     Dosage: 6 MG, BID
     Route: 048
     Dates: start: 20030101
  3. MIRALAX [Concomitant]
     Dosage: 1 TBSP BID
  4. AMBIEN [Concomitant]
     Dosage: 5 MG, QHS
  5. NEXIUM [Concomitant]
     Dosage: 40 MG, BID
  6. VERELAN [Concomitant]
     Dosage: 180 MG, QD
  7. SINGULAIR [Concomitant]
     Dosage: 10 MG, QHS
  8. SYNTHROID [Concomitant]
     Dosage: 112 UG, QD
  9. ALBUTEROL [Concomitant]
     Dosage: UNK, PRN

REACTIONS (9)
  - ABDOMINAL TENDERNESS [None]
  - BLOOD URINE PRESENT [None]
  - CHEST PAIN [None]
  - DYSPNOEA [None]
  - HYPERCHOLESTEROLAEMIA [None]
  - HYPERGLYCAEMIA [None]
  - HYPERTENSION [None]
  - NON-CARDIAC CHEST PAIN [None]
  - WHEEZING [None]
